FAERS Safety Report 21637960 (Version 2)
Quarter: 2022Q4

REPORT INFORMATION
  Report Type: Spontaneous
  Country: US (occurrence: US)
  Receive Date: 20221124
  Receipt Date: 20221128
  Transmission Date: 20230112
  Serious: No
  Sender: FDA-Public Use
  Company Number: US-002147023-NVSC2022US264578

PATIENT
  Age: 63 Year
  Sex: Female

DRUGS (2)
  1. ESTRADIOL [Suspect]
     Active Substance: ESTRADIOL
     Indication: Hysterectomy
     Dosage: 1 DOSAGE FORM, 3 TO 5 DAYS (CHANGES HER PATCHES ON SUNDAYS AND WEDNESDAYS)
     Route: 062
  2. ESTRADIOL [Suspect]
     Active Substance: ESTRADIOL
     Dosage: UNK, (LOWER DOSE (EXACT DOSE UNKNOWN)
     Route: 062

REACTIONS (3)
  - Product dose omission in error [Recovered/Resolved]
  - Off label use [Unknown]
  - Therapeutic product effect incomplete [Recovered/Resolved]
